FAERS Safety Report 4531422-6 (Version None)
Quarter: 2004Q4

REPORT INFORMATION
  Report Type: 
  Country: None (occurrence: None)
  Receive Date: 20041217
  Receipt Date: 20041207
  Transmission Date: 20050328
  Serious: Yes (Other)
  Sender: FDA-Public Use
  Company Number: 2004105842

PATIENT
  Age: 54 Year
  Sex: Female
  Weight: 58.9676 kg

DRUGS (2)
  1. LISTERINE ANTISEPTIC MOUTHWASH (MENTHOL, METHYL SALICYLATE, EUCALYPTOL [Suspect]
     Indication: ALCOHOL USE
     Dosage: AT LEAST 1.0L PER DAY, ORAL
     Route: 048
  2. CHLORDIAZEPOXIDE [Concomitant]

REACTIONS (2)
  - DRUG ABUSER [None]
  - INTENTIONAL MISUSE [None]
